FAERS Safety Report 21447215 (Version 1)
Quarter: 2022Q4

REPORT INFORMATION
  Report Type: Other
  Country: US (occurrence: US)
  Receive Date: 20221012
  Receipt Date: 20221012
  Transmission Date: 20230113
  Serious: Yes (Hospitalization, Disabling, Other)
  Sender: FDA-Public Use
  Company Number: US-DEXPHARM-20222006

PATIENT
  Age: 81 Year
  Sex: Male

DRUGS (17)
  1. SIMVASTATIN [Suspect]
     Active Substance: SIMVASTATIN
     Dosage: 40MG NIGHTLY
     Route: 050
  2. SERTRALINE [Suspect]
     Active Substance: SERTRALINE HYDROCHLORIDE
     Dosage: 200MG DAILY
     Route: 050
  3. MIRTAZAPINE [Suspect]
     Active Substance: MIRTAZAPINE
     Dosage: 30MG NIGHTLY
     Route: 050
  4. TRIAZOLAM [Suspect]
     Active Substance: TRIAZOLAM
     Dosage: 0.125MG NIGHTLY AS NEEDED
     Route: 050
  5. ACETAMINOPHEN\OXYCODONE HYDROCHLORIDE [Suspect]
     Active Substance: ACETAMINOPHEN\OXYCODONE HYDROCHLORIDE
     Dosage: 10MG/650MG EVERY 6H AS NEEDED
     Route: 050
  6. LISINOPRIL [Suspect]
     Active Substance: LISINOPRIL
     Dosage: 10MG DAILY
     Route: 050
  7. OMEPRAZOLE [Suspect]
     Active Substance: OMEPRAZOLE
     Dosage: 20MG TWICE DAILY
     Route: 050
  8. BUSPIRONE [Suspect]
     Active Substance: BUSPIRONE HYDROCHLORIDE
     Dosage: 15MG DAILY
     Route: 050
  9. MOMETASONE [Concomitant]
     Active Substance: MOMETASONE
     Dosage: 220 MCG TWICE DAILY
  10. ALBUTEROL [Suspect]
     Active Substance: ALBUTEROL
     Dosage: 90 MCG 1+#8211;2 PUFFS EVERY 6 HOURS AS NEEDED
  11. FORMOTEROL [Suspect]
     Active Substance: FORMOTEROL
     Dosage: 12 MCG TWICE DAILY
  12. ASPIRIN [Concomitant]
     Active Substance: ASPIRIN
     Dosage: 81 MG DAILY
  13. METFORMIN [Concomitant]
     Active Substance: METFORMIN HYDROCHLORIDE
     Dosage: 500 MG TWICE DAILY
  14. CHOLECALCIFEROL [Concomitant]
     Active Substance: CHOLECALCIFEROL
     Dosage: 1000 INTERNATIONAL UNITS DAILY
  15. CARBOXYMETHYLCELLULOSE [Concomitant]
     Active Substance: CARBOXYMETHYLCELLULOSE
     Dosage: 1 DROP 4 TIMES DAILY
  16. DORZOLAMIDE [Concomitant]
     Active Substance: DORZOLAMIDE
     Dosage: 2% SOLUTION 1 DROP TWICE DAILY
  17. TRAVOPROST [Concomitant]
     Active Substance: TRAVOPROST
     Dosage: 0.004% SOLUTION 1 DROP AT BEDTIME

REACTIONS (1)
  - Chronic obstructive pulmonary disease [Recovered/Resolved with Sequelae]
